FAERS Safety Report 13923928 (Version 1)
Quarter: 2017Q3

REPORT INFORMATION
  Report Type: Spontaneous
  Country: GB (occurrence: GB)
  Receive Date: 20170831
  Receipt Date: 20170831
  Transmission Date: 20171127
  Serious: Yes (Hospitalization)
  Sender: FDA-Public Use
  Company Number: GB-ROCHE-1976945

PATIENT
  Sex: Male
  Weight: 64 kg

DRUGS (2)
  1. SOMATROPIN. [Suspect]
     Active Substance: SOMATROPIN
     Indication: PRODUCT USED FOR UNKNOWN INDICATION
     Route: 058
     Dates: start: 200706
  2. NEBIDO [Suspect]
     Active Substance: TESTOSTERONE UNDECANOATE
     Indication: BLOOD GROWTH HORMONE
     Route: 030
     Dates: start: 200504

REACTIONS (4)
  - Cough [Unknown]
  - Dyspnoea [Unknown]
  - Anaphylactic reaction [Recovering/Resolving]
  - Electrocardiogram T wave inversion [Recovering/Resolving]

NARRATIVE: CASE EVENT DATE: 20070625
